FAERS Safety Report 6961531-3 (Version None)
Quarter: 2010Q3

REPORT INFORMATION
  Report Type: 
  Country: None (occurrence: None)
  Receive Date: 20100901
  Receipt Date: 20100824
  Transmission Date: 20110219
  Serious: Yes (Other)
  Sender: FDA-Public Use
  Company Number: GXKR2010JP09560

PATIENT
  Age: 25 Year
  Sex: Male

DRUGS (4)
  1. FLUCONAZOLE [Suspect]
     Indication: ANTIFUNGAL PROPHYLAXIS
     Dosage: 200 MG/DAY
     Route: 065
  2. TRETINOIN [Interacting]
     Indication: ACUTE PROMYELOCYTIC LEUKAEMIA
     Dosage: 45 MG/M2/DAY
     Route: 065
  3. IDARUBICIN HCL [Concomitant]
  4. CYTARABINE [Concomitant]

REACTIONS (3)
  - DRUG INTERACTION [None]
  - HYPERCALCAEMIA [None]
  - RENAL IMPAIRMENT [None]
